FAERS Safety Report 6576804-6 (Version None)
Quarter: 2010Q1

REPORT INFORMATION
  Report Type: 
  Country: None (occurrence: None)
  Receive Date: 20100210
  Receipt Date: 20100129
  Transmission Date: 20100710
  Serious: Yes (Hospitalization)
  Sender: FDA-Public Use
  Company Number: JP-ROCHE-684408

PATIENT
  Sex: Male
  Weight: 98 kg

DRUGS (5)
  1. AVASTIN [Suspect]
     Indication: MACULOPATHY
     Route: 031
     Dates: start: 20071204, end: 20071204
  2. AVASTIN [Suspect]
     Route: 031
     Dates: start: 20081202, end: 20081202
  3. AVASTIN [Suspect]
     Route: 031
     Dates: start: 20090106, end: 20090106
  4. AVASTIN [Suspect]
     Route: 031
     Dates: start: 20090202, end: 20090202
  5. AVASTIN [Suspect]
     Dosage: DISCONTINUED
     Route: 031
     Dates: start: 20090413, end: 20090413

REACTIONS (1)
  - ENDOPHTHALMITIS [None]
